FAERS Safety Report 17648695 (Version 1)
Quarter: 2020Q2

REPORT INFORMATION
  Report Type: Spontaneous
  Country: JP (occurrence: JP)
  Receive Date: 20200409
  Receipt Date: 20200409
  Transmission Date: 20200713
  Serious: Yes (Hospitalization)
  Sender: FDA-Public Use
  Company Number: JP-GLAXOSMITHKLINE-JP2020056242

PATIENT
  Sex: Female

DRUGS (1)
  1. REQUIP [Suspect]
     Active Substance: ROPINIROLE HYDROCHLORIDE
     Indication: RESTLESS LEGS SYNDROME
     Dosage: 2 MG
     Route: 048

REACTIONS (10)
  - Night sweats [Unknown]
  - Product dose omission [Unknown]
  - Epistaxis [Unknown]
  - Abdominal pain [Recovered/Resolved]
  - Intentional product use issue [Unknown]
  - Headache [Unknown]
  - Diarrhoea [Recovered/Resolved]
  - Product use in unapproved indication [Unknown]
  - Dizziness [Unknown]
  - Physical deconditioning [Unknown]
